FAERS Safety Report 4428238-8 (Version None)
Quarter: 2004Q3

REPORT INFORMATION
  Report Type: 
  Country: None (occurrence: None)
  Receive Date: 20040818
  Receipt Date: 20000523
  Transmission Date: 20050211
  Serious: Yes (Hospitalization)
  Sender: FDA-Public Use
  Company Number: SE-ROCHE-237177

PATIENT
  Age: 22 Year
  Sex: Male

DRUGS (2)
  1. CELLCEPT [Suspect]
     Route: 065
     Dates: start: 20000215
  2. REMICADE [Concomitant]
     Dates: start: 20000215

REACTIONS (1)
  - CROHN'S DISEASE [None]
